FAERS Safety Report 9959324 (Version 1)
Quarter: 2014Q1

REPORT INFORMATION
  Report Type: Spontaneous
  Country: US (occurrence: US)
  Receive Date: 20140305
  Receipt Date: 20140305
  Transmission Date: 20141002
  Serious: No
  Sender: FDA-Public Use
  Company Number: US-ABBVIE-13P-163-1100426-00

PATIENT
  Age: 34 Year
  Sex: Female
  Weight: 77.18 kg

DRUGS (13)
  1. HUMIRA [Suspect]
     Indication: CROHN^S DISEASE
     Dates: start: 20130214, end: 20130214
  2. HUMIRA [Suspect]
     Dates: start: 20130228, end: 20130228
  3. HUMIRA [Suspect]
     Dates: start: 20130314
  4. UNKNOWN COLD MEDICINE [Suspect]
     Indication: PRODUCT USED FOR UNKNOWN INDICATION
  5. WELLBUTRIN [Concomitant]
     Indication: ANXIETY
  6. WELLBUTRIN [Concomitant]
     Indication: DEPRESSION
  7. METFORMIN [Concomitant]
     Indication: INSULIN RESISTANCE
  8. METFORMIN [Concomitant]
     Indication: POLYCYSTIC OVARIES
  9. SULFASALAZINE [Concomitant]
     Indication: CROHN^S DISEASE
  10. ZINC [Concomitant]
     Indication: MINERAL SUPPLEMENTATION
  11. ZINC [Concomitant]
     Indication: CROHN^S DISEASE
  12. FOLIC ACID [Concomitant]
     Indication: VITAMIN SUPPLEMENTATION
  13. FOLIC ACID [Concomitant]
     Indication: CROHN^S DISEASE

REACTIONS (1)
  - Injection site pain [Not Recovered/Not Resolved]
